FAERS Safety Report 12420317 (Version 1)
Quarter: 2016Q2

REPORT INFORMATION
  Report Type: Spontaneous
  Country: US (occurrence: US)
  Receive Date: 20160531
  Receipt Date: 20160531
  Transmission Date: 20160815
  Serious: No
  Sender: FDA-Public Use
  Company Number: US-ENDO PHARMACEUTICALS INC.-2015-004493

PATIENT
  Age: 16 Year
  Sex: Female
  Weight: 69.7 kg

DRUGS (3)
  1. ORSYTHIA [Suspect]
     Active Substance: ETHINYL ESTRADIOL\LEVONORGESTREL
     Indication: DYSMENORRHOEA
     Route: 048
     Dates: start: 20150409, end: 201507
  2. AVIANE [Suspect]
     Active Substance: ETHINYL ESTRADIOL\LEVONORGESTREL
     Indication: DYSMENORRHOEA
     Dosage: 0.1-0.2 EVERYDAY
     Route: 065
     Dates: start: 20141217, end: 20150728
  3. APRI [Suspect]
     Active Substance: DESOGESTREL\ETHINYL ESTRADIOL
     Indication: PRODUCT USED FOR UNKNOWN INDICATION
     Dosage: 0.15-0.03 EVERYDAY
     Route: 065
     Dates: start: 20150728

REACTIONS (2)
  - Headache [Unknown]
  - Off label use [Recovered/Resolved]

NARRATIVE: CASE EVENT DATE: 20150409
